FAERS Safety Report 9048864 (Version 1)
Quarter: 2013Q1

REPORT INFORMATION
  Report Type: Spontaneous
  Country: US (occurrence: None)
  Receive Date: 20130130
  Receipt Date: 20130130
  Transmission Date: 20140127
  Serious: No
  Sender: FDA-Public Use
  Company Number: None

PATIENT
  Sex: 0

DRUGS (1)
  1. RANITIDINE [Suspect]
     Dosage: LOT# 280300?EXP. DATE 04-14

REACTIONS (1)
  - Product odour abnormal [None]
